FAERS Safety Report 7356227-2 (Version None)
Quarter: 2011Q1

REPORT INFORMATION
  Report Type: 
  Country: None (occurrence: None)
  Receive Date: 20110316
  Receipt Date: 20100927
  Transmission Date: 20110831
  Serious: Yes (Hospitalization)
  Sender: FDA-Public Use
  Company Number: US-BAYER-201027472NA

PATIENT
  Sex: Female
  Weight: 45.351 kg

DRUGS (4)
  1. YAZ [Suspect]
     Indication: ORAL CONTRACEPTION
     Dosage: UNK UNK, QD
     Route: 048
     Dates: start: 20060101, end: 20090722
  2. YASMIN [Suspect]
     Indication: ORAL CONTRACEPTION
     Dosage: UNK UNK, QD
     Route: 048
     Dates: start: 20060101, end: 20090722
  3. OCELLA [Suspect]
     Indication: ORAL CONTRACEPTION
     Dosage: UNK UNK, QD
     Route: 048
     Dates: start: 20060101
  4. PHENTERMINE [Concomitant]
     Dosage: UNK

REACTIONS (11)
  - DEEP VEIN THROMBOSIS [None]
  - ABORTION SPONTANEOUS [None]
  - HYPOPHAGIA [None]
  - CHOLECYSTECTOMY [None]
  - COAGULOPATHY [None]
  - CHOLELITHIASIS [None]
  - PREGNANCY ON ORAL CONTRACEPTIVE [None]
  - CHOLECYSTITIS CHRONIC [None]
  - HEPATITIS [None]
  - ANTIPHOSPHOLIPID SYNDROME [None]
  - DRUG EXPOSURE DURING PREGNANCY [None]
